FAERS Safety Report 9981303 (Version 1)
Quarter: 2014Q1

REPORT INFORMATION
  Report Type: Spontaneous
  Country: US (occurrence: None)
  Receive Date: 20140306
  Receipt Date: 20140306
  Transmission Date: 20141002
  Serious: Yes (Disabling)
  Sender: FDA-Public Use
  Company Number: None

PATIENT
  Age: 62 Year
  Sex: Male
  Weight: 95.26 kg

DRUGS (1)
  1. AMLODIPINE-BENZAPRIL [Suspect]
     Indication: HYPERTENSION
     Route: 048
     Dates: start: 20131216, end: 20140304

REACTIONS (2)
  - Drug ineffective [None]
  - Product quality issue [None]
